FAERS Safety Report 4296432-5 (Version None)
Quarter: 2004Q1

REPORT INFORMATION
  Report Type: 
  Country: None (occurrence: None)
  Receive Date: 20040212
  Receipt Date: 20040126
  Transmission Date: 20041129
  Serious: Yes (Life-Threatening)
  Sender: FDA-Public Use
  Company Number: A01200400310

PATIENT
  Age: 46 Year
  Sex: Female

DRUGS (5)
  1. PLAQUENIL [Suspect]
     Indication: RHEUMATOID ARTHRITIS
     Dosage: 200 MG ORAL
     Route: 048
     Dates: start: 20031001, end: 20031024
  2. PLAQUENIL [Suspect]
     Indication: SYSTEMIC LUPUS ERYTHEMATOSUS
     Dosage: 200 MG ORAL
     Route: 048
     Dates: start: 20031001, end: 20031024
  3. PREDNISOLONE [Concomitant]
  4. LISINOPRIL [Concomitant]
  5. INSULIN [Concomitant]

REACTIONS (1)
  - TOXIC EPIDERMAL NECROLYSIS [None]
